FAERS Safety Report 22308580 (Version 1)
Quarter: 2023Q2

REPORT INFORMATION
  Report Type: Spontaneous
  Country: US (occurrence: None)
  Receive Date: 20230511
  Receipt Date: 20230511
  Transmission Date: 20230722
  Serious: No
  Sender: FDA-Public Use
  Company Number: US-ROCHE-3212735

PATIENT
  Sex: Male

DRUGS (1)
  1. OCREVUS [Suspect]
     Active Substance: OCRELIZUMAB
     Indication: Primary progressive multiple sclerosis
     Dosage: ONGOING : NO
     Route: 065

REACTIONS (11)
  - Weight decreased [Unknown]
  - Malabsorption [Unknown]
  - Abdominal pain upper [Unknown]
  - Diarrhoea [Unknown]
  - Drug ineffective [Unknown]
  - Constipation [Unknown]
  - Bladder cyst [Unknown]
  - Drug hypersensitivity [Unknown]
  - Pain [Unknown]
  - Fatigue [Unknown]
  - Vomiting [Unknown]
